FAERS Safety Report 9315050 (Version 2)
Quarter: 2013Q2

REPORT INFORMATION
  Report Type: Spontaneous
  Country: US (occurrence: US)
  Receive Date: 20130529
  Receipt Date: 20130614
  Transmission Date: 20140414
  Serious: Yes (Hospitalization)
  Sender: FDA-Public Use
  Company Number: US-B.I. PHARMACEUTICALS,INC./RIDGEFIELD-2013-BI-14469BP

PATIENT
  Age: 76 Year
  Sex: Male
  Weight: 77 kg

DRUGS (6)
  1. PRADAXA [Suspect]
     Indication: ATRIAL FIBRILLATION
     Route: 048
     Dates: start: 2011, end: 201210
  2. PRADAXA [Suspect]
     Dosage: 300 MG
     Route: 048
     Dates: start: 20130501
  3. TAMSULOSIN [Concomitant]
     Indication: PROSTATIC DISORDER
     Dosage: 0.4 MG
     Route: 048
  4. NASACORT AQ [Concomitant]
     Indication: ASTHMA
     Dosage: 4 PUF
     Route: 055
  5. DILTIAZEM [Concomitant]
     Indication: CARDIAC DISORDER
     Dosage: 360 MG
     Route: 048
  6. FLOVENT DISKUS [Concomitant]
     Indication: ASTHMA
     Dosage: 250 MG
     Route: 055

REACTIONS (1)
  - Atrial fibrillation [Not Recovered/Not Resolved]
